FAERS Safety Report 12992123 (Version 1)
Quarter: 2016Q4

REPORT INFORMATION
  Report Type: Spontaneous
  Country: US (occurrence: US)
  Receive Date: 20161201
  Receipt Date: 20161201
  Transmission Date: 20170207
  Serious: No
  Sender: FDA-Public Use
  Company Number: US-SIGMA-TAU US-2016STPI000747

PATIENT
  Age: 34 Year
  Sex: Female

DRUGS (7)
  1. GENGRAF [Concomitant]
     Active Substance: CYCLOSPORINE
  2. CYSTARAN [Suspect]
     Active Substance: CYSTEAMINE HYDROCHLORIDE
     Indication: CORNEAL DEPOSITS
     Dosage: 1 UNK, UNK
     Route: 047
  3. CYSTAGON [Concomitant]
     Active Substance: CYSTEAMINE BITARTRATE
  4. ATENOLOL. [Concomitant]
     Active Substance: ATENOLOL
  5. PRAVACOL [Concomitant]
     Active Substance: PRAVASTATIN SODIUM
  6. IMURAN [Concomitant]
     Active Substance: AZATHIOPRINE
  7. PREDNISONE                         /00044702/ [Concomitant]
     Active Substance: PREDNISONE

REACTIONS (2)
  - Eye infection [Recovered/Resolved]
  - Burning sensation [Recovered/Resolved]

NARRATIVE: CASE EVENT DATE: 201609
